FAERS Safety Report 24452775 (Version 1)
Quarter: 2024Q4

REPORT INFORMATION
  Report Type: Spontaneous
  Country: BE (occurrence: BE)
  Receive Date: 20241017
  Receipt Date: 20241017
  Transmission Date: 20250115
  Serious: Yes (Disabling)
  Sender: TEVA
  Company Number: None

PATIENT
  Age: 30 Year
  Sex: Female
  Weight: 117 kg

DRUGS (8)
  1. EPIRUBICIN [Suspect]
     Active Substance: EPIRUBICIN
     Indication: Product used for unknown indication
     Dosage: IV 200MG IN 250ML NACL 0.9% IN 30 MIN 4TH TREATMENT OF CHEMOTHERAPY
     Route: 065
     Dates: start: 20240829, end: 20240829
  2. NETUPITANT PALONOSETRON [Concomitant]
     Indication: Product used for unknown indication
     Dosage: 1H BEFORE CHEMOTHERAPY, 0.5MG, 300MG
     Route: 065
     Dates: start: 20240829, end: 20240829
  3. ELIQUIS [Concomitant]
     Active Substance: APIXABAN
     Indication: Thrombophlebitis
     Dosage: MORNING/EVENING
     Route: 065
     Dates: start: 20240814
  4. DAFALGAN [Concomitant]
     Active Substance: ACETAMINOPHEN
     Indication: Product used for unknown indication
     Dosage: IF NEEDED
     Route: 065
  5. CYCLOPHOSPHAMIDE [Suspect]
     Active Substance: CYCLOPHOSPHAMIDE
     Indication: Product used for unknown indication
     Dosage: 1320 MG IN 250 ML NACL 0.9% IN 30 MIN 4TH TREATMENT OF CHEMOTHERAPY
     Route: 065
     Dates: start: 20240829, end: 20240829
  6. DEXAMETHASONE [Concomitant]
     Active Substance: DEXAMETHASONE
     Indication: Product used for unknown indication
     Dosage: IV PERFUSION 10MG
     Route: 065
     Dates: start: 20240829, end: 20240829
  7. ZIEXTENZO [Concomitant]
     Active Substance: PEGFILGRASTIM-BMEZ
     Indication: Neutropenia
     Dosage: TIME INTERVAL: TOTAL: 1 INJECTION ON 30/08; 1 DAY AFTER THE 4TH COURSE OF CHEMOTHERAPY (2024/08/29)
     Route: 058
     Dates: start: 20240830
  8. BEFACT FORTE [Concomitant]
     Indication: Product used for unknown indication
     Route: 065

REACTIONS (6)
  - Haemorrhoids [Unknown]
  - Gastrointestinal motility disorder [Unknown]
  - Asthenia [Recovered/Resolved]
  - Abdominal pain upper [Unknown]
  - Headache [Unknown]
  - Myalgia [Unknown]

NARRATIVE: CASE EVENT DATE: 20240901
